FAERS Safety Report 14176681 (Version 1)
Quarter: 2017Q4

REPORT INFORMATION
  Report Type: Spontaneous
  Country: US (occurrence: US)
  Receive Date: 20171109
  Receipt Date: 20171109
  Transmission Date: 20180321
  Serious: Yes (Other)
  Sender: FDA-Public Use
  Company Number: None

PATIENT
  Age: 51 Year
  Sex: Female
  Weight: 61 kg

DRUGS (9)
  1. METFORMIN [Concomitant]
     Active Substance: METFORMIN HYDROCHLORIDE
  2. TUMERIC [Concomitant]
     Active Substance: HERBALS\TURMERIC
  3. DIOVAN AMYTRYPTALINE [Concomitant]
  4. SPIRONOLACTONE. [Concomitant]
     Active Substance: SPIRONOLACTONE
  5. OMEGA 3 [Concomitant]
     Active Substance: OMEGA-3 FATTY ACIDS
  6. VITAMIN C [Concomitant]
     Active Substance: ASCORBIC ACID
  7. NITROFURANTOIN. [Suspect]
     Active Substance: NITROFURANTOIN
     Indication: URINARY TRACT INFECTION
     Dosage: ?          QUANTITY:10 CAPSULE(S);OTHER ROUTE:PO?EVERY 12 HOURS
     Dates: start: 20171030, end: 20171102
  8. DULOXETINE. [Concomitant]
     Active Substance: DULOXETINE
  9. VITAMIN D [Concomitant]
     Active Substance: CHOLECALCIFEROL

REACTIONS (5)
  - Pulmonary oedema [None]
  - Vomiting [None]
  - Dysuria [None]
  - Cardiac failure [None]
  - Asthma [None]

NARRATIVE: CASE EVENT DATE: 20171030
